FAERS Safety Report 8920549 (Version 4)
Quarter: 2014Q2

REPORT INFORMATION
  Report Type: Report from Study
  Country: HR (occurrence: HR)
  Receive Date: 20121122
  Receipt Date: 20140617
  Transmission Date: 20141212
  Serious: Yes (Other)
  Sender: FDA-Public Use
  Company Number: HR-PFIZER INC-2012289126

PATIENT
  Age: 5 Year
  Sex: Male
  Weight: 20.8 kg

DRUGS (1)
  1. MOROCTOCOG ALFA [Suspect]
     Indication: FACTOR VIII DEFICIENCY
     Dosage: 800 IU, 2X/WEEK
     Route: 042
     Dates: start: 20120102, end: 20130324

REACTIONS (1)
  - Factor VIII inhibition [Recovered/Resolved]
